FAERS Safety Report 6137862-6 (Version None)
Quarter: 2009Q1

REPORT INFORMATION
  Report Type: 
  Country: None (occurrence: None)
  Receive Date: 20090331
  Receipt Date: 20090323
  Transmission Date: 20090719
  Serious: Yes (Other)
  Sender: FDA-Public Use
  Company Number: PHHY2009DE03367

PATIENT
  Sex: Female
  Weight: 73 kg

DRUGS (5)
  1. ZOMETA [Suspect]
     Indication: BONE DISORDER
     Dosage: 4 MG, QMO
     Route: 042
     Dates: start: 20071218
  2. ZOMETA [Suspect]
     Dosage: 4 MG, QMO
     Route: 042
     Dates: end: 20080409
  3. IBANDRONATE SODIUM [Concomitant]
     Dosage: UNK
     Dates: start: 20070308, end: 20071120
  4. MELPHALAN [Concomitant]
     Dosage: 27 MG
     Route: 042
     Dates: start: 20080626, end: 20081211
  5. PREDNISOLONE [Concomitant]
     Dosage: UNK
     Dates: start: 20080601, end: 20081211

REACTIONS (4)
  - ANAEMIA [None]
  - BONE FISSURE [None]
  - OSTEONECROSIS [None]
  - TOOTH EXTRACTION [None]
